FAERS Safety Report 4331015-X (Version None)
Quarter: 2004Q1

REPORT INFORMATION
  Report Type: 
  Country: None (occurrence: None)
  Receive Date: 20040331
  Receipt Date: 20040322
  Transmission Date: 20041129
  Serious: Yes (Other)
  Sender: FDA-Public Use
  Company Number: 2004017753

PATIENT
  Age: 9 Month
  Sex: Female
  Weight: 8.6183 kg

DRUGS (2)
  1. ZYRTEC [Suspect]
     Indication: ILL-DEFINED DISORDER
     Dosage: 1/4 TSP ORAL
     Route: 048
     Dates: start: 20040101, end: 20040307
  2. ZITHROMAX [Suspect]
     Indication: OTITIS MEDIA ACUTE
     Dosage: 10 MG/KG 3 DAYS, ORAL
     Route: 048
     Dates: start: 20040308, end: 20040310

REACTIONS (8)
  - BRONCHIOLITIS [None]
  - COUGH [None]
  - DRUG INEFFECTIVE [None]
  - EAR HAEMORRHAGE [None]
  - OTITIS MEDIA ACUTE [None]
  - PHARYNGOLARYNGEAL PAIN [None]
  - RHINORRHOEA [None]
  - SINUSITIS [None]
